FAERS Safety Report 8244948 (Version 7)
Quarter: 2013Q4

REPORT INFORMATION
  Report Type: Report from Study
  Country: AU (occurrence: AU)
  Receive Date: 20111115
  Receipt Date: 20131003
  Transmission Date: 20140711
  Serious: Yes (Other)
  Sender: FDA-Public Use
  Company Number: PHHO2011AU18302

PATIENT
  Age: 63 Year
  Sex: Male

DRUGS (6)
  1. CYCLOSPORINE [Suspect]
     Indication: RENAL TRANSPLANT
     Dosage: 125 MG, QD
     Route: 048
     Dates: start: 20061127
  2. CYCLOSPORINE [Suspect]
     Dosage: 100 MG, QD
     Dates: start: 20111214
  3. PREDNISONE [Suspect]
     Indication: RENAL TRANSPLANT
     Dosage: 5 MG, QD
     Route: 048
     Dates: start: 20061128
  4. CELLCEPT [Suspect]
     Indication: RENAL TRANSPLANT
     Dosage: 2000 MG, QD
     Route: 048
     Dates: start: 20061128
  5. ADALAT [Concomitant]
     Dosage: UNK
     Dates: start: 20081027
  6. AVAPRO [Concomitant]
     Dosage: UNK
     Dates: start: 20100420

REACTIONS (3)
  - Squamous cell carcinoma of skin [Recovered/Resolved]
  - Basal cell carcinoma [Not Recovered/Not Resolved]
  - Bowen^s disease [Not Recovered/Not Resolved]
